FAERS Safety Report 7622116-9 (Version None)
Quarter: 2011Q3

REPORT INFORMATION
  Report Type: 
  Country: None (occurrence: None)
  Receive Date: 20110720
  Receipt Date: 20110325
  Transmission Date: 20111222
  Serious: Yes (Hospitalization, Other)
  Sender: FDA-Public Use
  Company Number: US-BAYER-2011-007857

PATIENT
  Age: 24 Year
  Sex: Female
  Weight: 63 kg

DRUGS (1)
  1. YAZ [Suspect]
     Indication: CONTRACEPTION
     Route: 048
     Dates: start: 20070301, end: 20070901

REACTIONS (7)
  - ABDOMINAL PAIN [None]
  - LOBAR PNEUMONIA [None]
  - SUBCLAVIAN VEIN THROMBOSIS [None]
  - BILIARY DYSKINESIA [None]
  - PROCEDURAL PAIN [None]
  - NAUSEA [None]
  - CHEST PAIN [None]
